FAERS Safety Report 4599198-4 (Version None)
Quarter: 2005Q2

REPORT INFORMATION
  Report Type: 
  Country: None (occurrence: None)
  Receive Date: 20050207
  Receipt Date: 20040928
  Transmission Date: 20051028
  Serious: Yes (Other)
  Sender: FDA-Public Use
  Company Number: PROG00204003500

PATIENT
  Sex: Female

DRUGS (7)
  1. PROMETRIUM [Suspect]
     Indication: HORMONE REPLACEMENT THERAPY
     Dosage: DAILY; ORAL
     Route: 048
  2. ESTRATEST [Suspect]
     Indication: HORMONE REPLACEMENT THERAPY
     Dosage: DAILY; ORAL
     Route: 048
  3. MEDROXYPROGESTERONE ACETATE [Suspect]
     Indication: HORMONE REPLACEMENT THERAPY
     Dosage: DAILY; ORAL
     Route: 048
  4. PREMARIN [Suspect]
     Indication: HORMONE REPLACEMENT THERAPY
     Dosage: DAILY; ORAL
     Route: 048
  5. PREMPHASE (PREMARIN;CYCRIN 14/14) [Suspect]
     Indication: HORMONE REPLACEMENT THERAPY
     Dosage: DAILY; ORAL
     Route: 048
  6. PREMPRO [Suspect]
     Indication: HORMONE REPLACEMENT THERAPY
     Dosage: DAILY; ORAL
     Route: 048
  7. PROVERA [Suspect]
     Indication: HORMONE REPLACEMENT THERAPY
     Dosage: DAILY, ORAL
     Route: 048

REACTIONS (1)
  - BREAST CANCER [None]
